FAERS Safety Report 11981632 (Version 6)
Quarter: 2018Q4

REPORT INFORMATION
  Report Type: Report from Study
  Country: JP (occurrence: JP)
  Receive Date: 20160131
  Receipt Date: 20181025
  Transmission Date: 20190204
  Serious: Yes (Death, Other)
  Sender: FDA-Public Use
  Company Number: PHJP2016JP001843

PATIENT
  Age: 24 Year
  Sex: Male

DRUGS (18)
  1. PULMOZYME [Concomitant]
     Active Substance: DORNASE ALFA
     Indication: CYSTIC FIBROSIS
     Dosage: 5 MG, QD
     Route: 055
  2. GRACEVIT [Concomitant]
     Active Substance: SITAFLOXACIN
     Dosage: 100 MG, QD
     Route: 048
     Dates: start: 20140430, end: 20140509
  3. KLARICID [Concomitant]
     Active Substance: CLARITHROMYCIN
     Indication: PSEUDOMONAS INFECTION
     Dosage: 200 MG, QD
     Route: 048
  4. GRACEVIT [Concomitant]
     Active Substance: SITAFLOXACIN
     Dosage: 100 MG, UNK
     Route: 048
     Dates: start: 20141212
  5. AMBROXOL HYDROCHLORIDE [Concomitant]
     Active Substance: AMBROXOL HYDROCHLORIDE
     Indication: CYSTIC FIBROSIS
     Dosage: 45 MG, QD
     Route: 048
  6. SEIHAITO [Concomitant]
     Active Substance: HERBALS
     Indication: PRODUCT USED FOR UNKNOWN INDICATION
     Dosage: 9 G, UNK
     Route: 048
     Dates: start: 20140822, end: 20140904
  7. GRACEVIT [Concomitant]
     Active Substance: SITAFLOXACIN
     Dosage: 100 MG, UNK
     Route: 048
     Dates: start: 20141024, end: 20141030
  8. HOKUNALIN [Concomitant]
     Active Substance: TULOBUTEROL
     Indication: CYSTIC FIBROSIS
     Dosage: 2 MG, QD
     Route: 065
  9. BIOFERMIN [Concomitant]
     Active Substance: BACILLUS SUBTILIS\LACTOBACILLUS ACIDOPHILUS\STREPTOCOCCUS FAECAIS
     Indication: PROPHYLAXIS
     Dosage: 3 DF, UNK
     Route: 048
  10. SEIHAITO [Concomitant]
     Active Substance: HERBALS
     Dosage: 9 G, UNK
     Route: 048
     Dates: start: 20141212
  11. TOBI [Suspect]
     Active Substance: TOBRAMYCIN
     Indication: PSEUDOMONAS INFECTION
  12. MUCODYNE [Concomitant]
     Active Substance: CARBOCYSTEINE
     Indication: CYSTIC FIBROSIS
     Dosage: 1500 MG, QD
     Route: 048
  13. SINGULAIR [Concomitant]
     Active Substance: MONTELUKAST SODIUM
     Indication: CYSTIC FIBROSIS
     Dosage: 10 MG, QD
     Route: 048
  14. TOBI [Suspect]
     Active Substance: TOBRAMYCIN
     Indication: CYSTIC FIBROSIS
     Dosage: 300 MG, BID
     Route: 055
  15. GRACEVIT [Concomitant]
     Active Substance: SITAFLOXACIN
     Indication: CYSTIC FIBROSIS
     Dosage: 100 MG, QD
     Route: 048
     Dates: end: 20131219
  16. SEIHAITO [Concomitant]
     Active Substance: HERBALS
     Dosage: 9 G, UNK
     Route: 048
     Dates: start: 20141010, end: 20141113
  17. LOXOT [Concomitant]
     Indication: PRODUCT USED FOR UNKNOWN INDICATION
     Dosage: 60 MG, PRN
     Route: 048
     Dates: start: 20140726
  18. GRACEVIT [Concomitant]
     Active Substance: SITAFLOXACIN
     Dosage: 100 MG, UNK
     Route: 048
     Dates: start: 20141121, end: 20141130

REACTIONS (12)
  - Neisseria test positive [Unknown]
  - Respiratory disorder [Unknown]
  - Cystic fibrosis [Unknown]
  - Streptococcus test positive [Unknown]
  - Dyspnoea [Fatal]
  - White blood cell count increased [Not Recovered/Not Resolved]
  - Pneumonia [Fatal]
  - Staphylococcus test positive [Unknown]
  - Disease progression [Unknown]
  - Off label use [Unknown]
  - Candida infection [Unknown]
  - Corynebacterium test positive [Unknown]

NARRATIVE: CASE EVENT DATE: 20140114
